FAERS Safety Report 16825897 (Version 1)
Quarter: 2019Q3

REPORT INFORMATION
  Report Type: Spontaneous
  Country: US (occurrence: US)
  Receive Date: 20190919
  Receipt Date: 20190919
  Transmission Date: 20191005
  Serious: No
  Sender: FDA-Public Use
  Company Number: US-DRREDDYS-USA/USA/19/0114088

PATIENT
  Sex: Male

DRUGS (1)
  1. ZOLEDRONIC ACID INJECTION, 5 MG (BASE)/100 ML [Suspect]
     Active Substance: ZOLEDRONIC ACID
     Indication: BONE DENSITY DECREASED
     Dosage: 5 MG (BASE)/100 ML
     Route: 051

REACTIONS (3)
  - Eye inflammation [Recovering/Resolving]
  - Influenza like illness [Recovered/Resolved]
  - Arthralgia [Recovered/Resolved]
